FAERS Safety Report 4743085-5 (Version None)
Quarter: 2005Q3

REPORT INFORMATION
  Report Type: 
  Country: None (occurrence: None)
  Receive Date: 20050809
  Receipt Date: 20050729
  Transmission Date: 20060218
  Serious: Yes (Hospitalization)
  Sender: FDA-Public Use
  Company Number: EM2005-0365

PATIENT
  Age: 54 Year
  Sex: Male
  Weight: 89.8 kg

DRUGS (9)
  1. PROLEUKIN [Suspect]
     Indication: MALIGNANT MELANOMA
     Dosage: 36 MIU/M2, IV
     Route: 042
     Dates: start: 20050718, end: 20050722
  2. VINBLASTINE (VINBLASTINE) [Suspect]
     Indication: MALIGNANT MELANOMA
     Dosage: 1.2 MG/M2, QD, IV
     Route: 042
     Dates: start: 20050718, end: 20050721
  3. TEMOZOLOMIDE (TEMOZOLOMIDE) [Suspect]
     Indication: MALIGNANT MELANOMA
     Dosage: 150 MG/M2, QD, ORAL
     Route: 048
  4. CISPLATIN [Suspect]
     Indication: MALIGNANT MELANOMA
     Dosage: 20 MG/M2, QD, IV
     Route: 042
  5. INTERFERON ALFA-2B (INTERFERON ALFA-2B) [Suspect]
     Indication: MALIGNANT MELANOMA
     Dosage: SEE IMAGE
     Dates: start: 20050801
  6. VICODIN [Concomitant]
  7. LEVAQUIN [Concomitant]
  8. CEFEPIME (CEFEPIME) [Concomitant]
  9. FLAGYL [Concomitant]

REACTIONS (14)
  - ABDOMINAL PAIN [None]
  - ANASTOMOTIC COMPLICATION [None]
  - BODY TEMPERATURE INCREASED [None]
  - CATHETER RELATED INFECTION [None]
  - DRUG INEFFECTIVE [None]
  - GASTRITIS [None]
  - HEADACHE [None]
  - INADEQUATE ANALGESIA [None]
  - KLEBSIELLA INFECTION [None]
  - MASS [None]
  - NEUTROPENIA [None]
  - PAIN [None]
  - URINARY SYSTEM X-RAY ABNORMAL [None]
  - WHITE BLOOD CELL COUNT DECREASED [None]
